FAERS Safety Report 6704540 (Version 5)
Quarter: 2013Q1

REPORT INFORMATION
  Report Type: Spontaneous
  Country: US (occurrence: US)
  Receive Date: 20080721
  Receipt Date: 20130214
  Transmission Date: 20140127
  Serious: Yes (Other)
  Sender: FDA-Public Use
  Company Number: US-BAYER-200827614NA

PATIENT
  Sex: Female
  Weight: 72 kg

DRUGS (19)
  1. MAGNEVIST [Suspect]
     Indication: NUCLEAR MAGNETIC RESONANCE IMAGING BRAIN
     Dosage: UNK UNK, ONCE
     Dates: start: 20010323, end: 20010323
  2. GADOLINIUM IN UNSPECIFIED DRUG [Suspect]
     Indication: NUCLEAR MAGNETIC RESONANCE IMAGING BRAIN
     Dosage: 8 ML, ONCE
     Dates: start: 20000524, end: 20000524
  3. CELLCEPT [Concomitant]
  4. NEORAL [Concomitant]
  5. PHOSLO [Concomitant]
  6. NEPHROCAPS [Concomitant]
  7. ERYTHROPOIETIN [Concomitant]
  8. METOPROLOL [Concomitant]
  9. LOPID [Concomitant]
  10. COUMADIN [Concomitant]
  11. VIOXX [Concomitant]
  12. AMITRIPTYLINE [Concomitant]
  13. QUININE SULFATE [Concomitant]
  14. SENSIPAR [Concomitant]
  15. HYDROCHLOROTHIAZIDE [Concomitant]
  16. VERAPAMIL [Concomitant]
  17. OXYCONTIN [Concomitant]
  18. VASOTEC [Concomitant]
  19. KLONOPIN [Concomitant]

REACTIONS (34)
  - Nephrogenic systemic fibrosis [Not Recovered/Not Resolved]
  - Injury [Not Recovered/Not Resolved]
  - Anxiety [Not Recovered/Not Resolved]
  - Pain [Not Recovered/Not Resolved]
  - General physical health deterioration [Not Recovered/Not Resolved]
  - Scar [Not Recovered/Not Resolved]
  - Quality of life decreased [Not Recovered/Not Resolved]
  - Mobility decreased [Not Recovered/Not Resolved]
  - Myalgia [Not Recovered/Not Resolved]
  - Joint range of motion decreased [Not Recovered/Not Resolved]
  - Activities of daily living impaired [Not Recovered/Not Resolved]
  - Dry eye [Not Recovered/Not Resolved]
  - Depression [Not Recovered/Not Resolved]
  - Skin discolouration [Not Recovered/Not Resolved]
  - Skin hypertrophy [Not Recovered/Not Resolved]
  - Skin hyperpigmentation [Not Recovered/Not Resolved]
  - Peau d^orange [Not Recovered/Not Resolved]
  - Skin disorder [Not Recovered/Not Resolved]
  - Joint contracture [Not Recovered/Not Resolved]
  - Fibrosis [Not Recovered/Not Resolved]
  - Pain in extremity [Not Recovered/Not Resolved]
  - Myosclerosis [Not Recovered/Not Resolved]
  - Skin plaque [Not Recovered/Not Resolved]
  - Muscle atrophy [Not Recovered/Not Resolved]
  - Skin induration [Not Recovered/Not Resolved]
  - Nodule [Not Recovered/Not Resolved]
  - Muscle spasms [Not Recovered/Not Resolved]
  - Abdominal pain [Not Recovered/Not Resolved]
  - Varicose vein [Not Recovered/Not Resolved]
  - Skin fibrosis [Not Recovered/Not Resolved]
  - Muscle fibrosis [Not Recovered/Not Resolved]
  - Depressed mood [Not Recovered/Not Resolved]
  - Hypoaesthesia [Not Recovered/Not Resolved]
  - Disability [Not Recovered/Not Resolved]
